FAERS Safety Report 22284068 (Version 1)
Quarter: 2023Q2

REPORT INFORMATION
  Report Type: Spontaneous
  Country: DE (occurrence: DE)
  Receive Date: 20230504
  Receipt Date: 20230504
  Transmission Date: 20230722
  Serious: Yes (Other)
  Sender: FDA-Public Use
  Company Number: DE-002147023-NVSC2023DE101524

PATIENT
  Sex: Male

DRUGS (10)
  1. CYCLOPHOSPHAMIDE [Suspect]
     Active Substance: CYCLOPHOSPHAMIDE
     Indication: Lymphoma
     Dosage: UNK (INFUSION)
     Route: 065
  2. DOXORUBICIN [Suspect]
     Active Substance: DOXORUBICIN
     Indication: Lymphoma
     Dosage: UNK (INFUSION)
     Route: 065
  3. ETOPOSIDE [Suspect]
     Active Substance: ETOPOSIDE
     Indication: Lymphoma
     Dosage: UNK (INFUSION)
     Route: 065
  4. GRANISETRON [Suspect]
     Active Substance: GRANISETRON
     Indication: Lymphoma
     Dosage: UNK (SOLUTION FOR INFUSION) (INFUSION)
     Route: 065
  5. PREDNISOLONE [Suspect]
     Active Substance: PREDNISOLONE
     Indication: Lymphoma
     Dosage: UNK
     Route: 065
  6. CALCIUM [Suspect]
     Active Substance: CALCIUM
     Indication: Lymphoma
     Dosage: UNK
     Route: 065
  7. DEXAMETHASONE [Suspect]
     Active Substance: DEXAMETHASONE
     Indication: Lymphoma
     Dosage: UNK
     Route: 065
  8. EMEND [Suspect]
     Active Substance: APREPITANT
     Indication: Lymphoma
     Dosage: UNK
     Route: 065
  9. MESNA [Suspect]
     Active Substance: MESNA
     Indication: Lymphoma
     Dosage: UNK (INFUSION)
     Route: 065
  10. CALCIUM CHLORIDE\POTASSIUM CHLORIDE\SODIUM LACTATE [Suspect]
     Active Substance: CALCIUM CHLORIDE\POTASSIUM CHLORIDE\SODIUM LACTATE
     Indication: Lymphoma
     Dosage: UNK (INFUSION)
     Route: 065

REACTIONS (2)
  - Neutropenia [Unknown]
  - Alopecia [Unknown]
